FAERS Safety Report 23775476 (Version 1)
Quarter: 2024Q2

REPORT INFORMATION
  Report Type: Spontaneous
  Country: US (occurrence: US)
  Receive Date: 20240423
  Receipt Date: 20240423
  Transmission Date: 20240716
  Serious: No
  Sender: FDA-Public Use
  Company Number: US-BIOMARINAP-US-2024-157331

PATIENT

DRUGS (1)
  1. PALYNZIQ [Suspect]
     Active Substance: PEGVALIASE-PQPZ
     Indication: Phenylketonuria
     Dosage: UNK
     Route: 065
     Dates: start: 20240110

REACTIONS (3)
  - Rash [Unknown]
  - Erythema [Unknown]
  - Skin irritation [Unknown]

NARRATIVE: CASE EVENT DATE: 20240408
